FAERS Safety Report 5535308-X (Version None)
Quarter: 2007Q4

REPORT INFORMATION
  Report Type: 
  Country: None (occurrence: None)
  Receive Date: 20071204
  Receipt Date: 20071204
  Transmission Date: 20080405
  Serious: Yes (Hospitalization)
  Sender: FDA-Public Use
  Company Number: None

PATIENT
  Sex: Male
  Weight: 95.2554 kg

DRUGS (1)
  1. CLEAR CARE CIBA VISION [Suspect]
     Indication: DRUG THERAPY
     Dates: start: 20071130, end: 20071130

REACTIONS (5)
  - CHEMICAL EYE INJURY [None]
  - EYE IRRITATION [None]
  - EYE PAIN [None]
  - OCULAR HYPERAEMIA [None]
  - WRONG TECHNIQUE IN DRUG USAGE PROCESS [None]
